FAERS Safety Report 10170516 (Version 3)
Quarter: 2014Q2

REPORT INFORMATION
  Report Type: Report from Study
  Country: US (occurrence: US)
  Receive Date: 20140513
  Receipt Date: 20140528
  Transmission Date: 20141212
  Serious: Yes (Death)
  Sender: FDA-Public Use
  Company Number: PHEH2014US008382

PATIENT
  Age: 80 Year
  Sex: Male

DRUGS (2)
  1. SANDOSTATIN LAR [Suspect]
     Indication: ACROMEGALY
     Dosage: UNK UKN, UNK
  2. SOMAVERT [Suspect]
     Dosage: UNK UKN, UNK

REACTIONS (2)
  - Respiratory failure [Fatal]
  - Drug ineffective [Unknown]
